FAERS Safety Report 16984153 (Version 2)
Quarter: 2019Q4

REPORT INFORMATION
  Report Type: Spontaneous
  Country: US (occurrence: US)
  Receive Date: 20191101
  Receipt Date: 20191104
  Transmission Date: 20200122
  Serious: No
  Sender: FDA-Public Use
  Company Number: US-NEXGEN PHARMA, INC.-2076341

PATIENT
  Age: 21 Year
  Sex: Female

DRUGS (1)
  1. CHENODAL [Suspect]
     Active Substance: CHENODIOL
     Indication: TOTAL BILE ACIDS INCREASED
     Route: 048
     Dates: start: 20190814

REACTIONS (1)
  - Diarrhoea [Unknown]
